FAERS Safety Report 13753713 (Version 1)
Quarter: 2017Q3

REPORT INFORMATION
  Report Type: Spontaneous
  Country: US (occurrence: US)
  Receive Date: 20170713
  Receipt Date: 20170713
  Transmission Date: 20171127
  Serious: Yes (Hospitalization)
  Sender: FDA-Public Use
  Company Number: US-009507513-1707USA001877

PATIENT
  Age: 65 Year
  Sex: Female

DRUGS (12)
  1. LACTOBACILLUS ACIDOPHILUS [Concomitant]
     Active Substance: LACTOBACILLUS ACIDOPHILUS
  2. ATIVAN [Concomitant]
     Active Substance: LORAZEPAM
  3. BECLOMETHASONE DIPROPIONATE [Concomitant]
     Active Substance: BECLOMETHASONE DIPROPIONATE
  4. DOXEPIN HYDROCHLORIDE. [Concomitant]
     Active Substance: DOXEPIN HYDROCHLORIDE
  5. BACTRIM DS [Concomitant]
     Active Substance: SULFAMETHOXAZOLE\TRIMETHOPRIM
  6. HYDROCHLOROTHIAZIDE. [Concomitant]
     Active Substance: HYDROCHLOROTHIAZIDE
  7. VITAMIN D [Concomitant]
     Active Substance: CHOLECALCIFEROL
  8. KEYTRUDA [Suspect]
     Active Substance: PEMBROLIZUMAB
     Indication: GLIOBLASTOMA MULTIFORME
     Dosage: 200 MG, Q3W
     Route: 042
     Dates: start: 20170425
  9. ATORVASTATIN [Concomitant]
     Active Substance: ATORVASTATIN
  10. KEPPRA [Concomitant]
     Active Substance: LEVETIRACETAM
  11. CHOLECALCIFEROL [Concomitant]
     Active Substance: CHOLECALCIFEROL
  12. ATROVENT [Concomitant]
     Active Substance: IPRATROPIUM BROMIDE

REACTIONS (1)
  - Pneumonitis [Recovering/Resolving]

NARRATIVE: CASE EVENT DATE: 20170707
